FAERS Safety Report 11777480 (Version 2)
Quarter: 2016Q2

REPORT INFORMATION
  Report Type: Spontaneous
  Country: US (occurrence: US)
  Receive Date: 20151125
  Receipt Date: 20160627
  Transmission Date: 20160815
  Serious: No
  Sender: FDA-Public Use
  Company Number: US-ASTRAZENECA-2015SF09709

PATIENT
  Age: 57 Year
  Sex: Female

DRUGS (2)
  1. EXTENSIVE MEDICATIONS [Concomitant]
  2. SYMBICORT [Suspect]
     Active Substance: BUDESONIDE\FORMOTEROL FUMARATE DIHYDRATE
     Indication: ASTHMA
     Dosage: 160/4.5 UG, TWO PUFFS TWO TIMES A DAY
     Route: 055

REACTIONS (7)
  - Loss of consciousness [Unknown]
  - Drug ineffective [Unknown]
  - Accidental underdose [Unknown]
  - Device issue [Unknown]
  - Intentional product misuse [Unknown]
  - Vertigo [Unknown]
  - Immunodeficiency common variable [Unknown]

NARRATIVE: CASE EVENT DATE: 2014
